FAERS Safety Report 17367106 (Version 1)
Quarter: 2020Q1

REPORT INFORMATION
  Report Type: Spontaneous
  Country: SE (occurrence: SE)
  Receive Date: 20200204
  Receipt Date: 20200204
  Transmission Date: 20200409
  Serious: Yes (Hospitalization)
  Sender: FDA-Public Use
  Company Number: SE-MYLANLABS-2020M1012090

PATIENT
  Age: 14 Year
  Sex: Female

DRUGS (2)
  1. MELATONIN [Suspect]
     Active Substance: MELATONIN
     Indication: PRODUCT USED FOR UNKNOWN INDICATION
     Dosage: UNK
     Route: 048
     Dates: start: 20180611, end: 20180611
  2. FLUOXETINE [Suspect]
     Active Substance: FLUOXETINE HYDROCHLORIDE
     Indication: PRODUCT USED FOR UNKNOWN INDICATION
     Dosage: UNK
     Route: 048
     Dates: start: 20180611, end: 20180611

REACTIONS (9)
  - Hallucination [Unknown]
  - Unresponsive to stimuli [Unknown]
  - Dysarthria [Unknown]
  - Vomiting [Unknown]
  - Intentional overdose [Unknown]
  - Disorganised speech [Unknown]
  - Anxiety [Unknown]
  - Tachycardia [Unknown]
  - Intentional self-injury [Unknown]

NARRATIVE: CASE EVENT DATE: 201806
